FAERS Safety Report 4550080-8 (Version None)
Quarter: 2005Q1

REPORT INFORMATION
  Report Type: 
  Country: None (occurrence: None)
  Receive Date: 20050111
  Receipt Date: 20050111
  Transmission Date: 20050727
  Serious: Yes (Hospitalization)
  Sender: FDA-Public Use
  Company Number: None

PATIENT
  Age: 55 Year
  Sex: Female
  Weight: 43.5453 kg

DRUGS (16)
  1. TARCEVA [Suspect]
     Indication: NON-SMALL CELL LUNG CANCER
     Dosage: QD PO
     Route: 048
     Dates: start: 20041006
  2. COUMADIN [Concomitant]
  3. DECADRON [Concomitant]
  4. PREMARIN [Concomitant]
  5. AMBIEN [Concomitant]
  6. HYDROCODONE [Concomitant]
  7. ZOCOR [Concomitant]
  8. MAGNESIUM [Concomitant]
  9. POTASSIUM [Concomitant]
  10. DIFLUCAN [Concomitant]
  11. PREVACID [Concomitant]
  12. CARAFATE [Concomitant]
  13. MORPHINE SUF [Concomitant]
  14. DOZYCYCLINE [Concomitant]
  15. NOTRIPTYLINE [Concomitant]
  16. TARCEVA [Concomitant]

REACTIONS (2)
  - DEHYDRATION [None]
  - WEIGHT DECREASED [None]
